FAERS Safety Report 6237819-0 (Version None)
Quarter: 2009Q2

REPORT INFORMATION
  Report Type: 
  Country: None (occurrence: None)
  Receive Date: 20090617
  Receipt Date: 20090610
  Transmission Date: 20091009
  Serious: Yes (Other)
  Sender: FDA-Public Use
  Company Number: CHPA2009US13282

PATIENT
  Age: 86 Year
  Sex: Female

DRUGS (1)
  1. NODOZ (NCH) (CAFFEINE) CAPLET [Suspect]
     Dosage: ORAL
     Route: 048
     Dates: start: 20090601, end: 20090601

REACTIONS (4)
  - CONFUSIONAL STATE [None]
  - DIZZINESS [None]
  - DYSSTASIA [None]
  - SYNCOPE [None]
